FAERS Safety Report 4836937-9 (Version None)
Quarter: 2005Q4

REPORT INFORMATION
  Report Type: 
  Country: None (occurrence: None)
  Receive Date: 20051123
  Receipt Date: 20050628
  Transmission Date: 20060501
  Serious: Yes (Death, Hospitalization, Other)
  Sender: FDA-Public Use
  Company Number: GB-MERCK-0506GBR00194

PATIENT
  Age: 88 Year
  Sex: Male

DRUGS (9)
  1. SINGULAIR [Suspect]
     Indication: ASTHMA LATE ONSET
     Route: 048
     Dates: end: 20050609
  2. MESALAMINE [Concomitant]
     Route: 065
  3. INDAPAMIDE [Concomitant]
     Route: 065
  4. INSULIN, BIPHASIC ISOPHANE [INJECTION] [Concomitant]
     Route: 065
  5. EPROSARTAN [Concomitant]
     Route: 065
  6. ASPIRIN [Concomitant]
     Route: 065
  7. FLUTICASONE PROPIONATE AND SALMETEROL XINAFOATE [Concomitant]
     Route: 055
  8. AMITRIPTYLINE HYDROCHLORIDE [Concomitant]
     Indication: POST HERPETIC NEURALGIA
     Route: 065
  9. DICLOFENAC SODIUM [Concomitant]
     Indication: OSTEOARTHRITIS
     Route: 065

REACTIONS (1)
  - ALLERGIC GRANULOMATOUS ANGIITIS [None]
